FAERS Safety Report 4690320-8 (Version None)
Quarter: 2005Q2

REPORT INFORMATION
  Report Type: 
  Country: None (occurrence: None)
  Receive Date: 20050615
  Receipt Date: 20050513
  Transmission Date: 20051028
  Serious: Yes (Other)
  Sender: FDA-Public Use
  Company Number: JP-BRISTOL-MYERS SQUIBB COMPANY-12981635

PATIENT
  Age: 67 Year
  Sex: Male

DRUGS (4)
  1. SINEMET [Suspect]
     Indication: PARKINSON'S DISEASE
     Route: 048
     Dates: start: 20050428, end: 20050502
  2. LANIRAPID [Concomitant]
     Dates: start: 19990818
  3. PANALDINE [Concomitant]
     Dates: start: 19990217
  4. SUNRYTHM [Concomitant]
     Dates: start: 19990113

REACTIONS (5)
  - ABDOMINAL PAIN [None]
  - DYSGEUSIA [None]
  - FEELING ABNORMAL [None]
  - JAUNDICE [None]
  - LIVER DISORDER [None]
